FAERS Safety Report 21028564 (Version 2)
Quarter: 2022Q3

REPORT INFORMATION
  Report Type: Spontaneous
  Country: US (occurrence: US)
  Receive Date: 20220630
  Receipt Date: 20220718
  Transmission Date: 20221027
  Serious: No
  Sender: FDA-Public Use
  Company Number: US-SA-SAC20220629000991

PATIENT
  Age: 73 Year
  Sex: Male
  Weight: 59 kg

DRUGS (8)
  1. DUPIXENT [Suspect]
     Active Substance: DUPILUMAB
     Indication: Dermatitis atopic
     Dosage: 600 MG, 1X
     Route: 058
     Dates: start: 20220601, end: 20220601
  2. DUPIXENT [Suspect]
     Active Substance: DUPILUMAB
     Dosage: 300 MG, QOW
  3. CLOBETASOL [Concomitant]
     Active Substance: CLOBETASOL
     Dosage: TWICE DAILY
  4. PREDNISONE [Concomitant]
     Active Substance: PREDNISONE
  5. NYSTATIN [Concomitant]
     Active Substance: NYSTATIN
  6. AMOXICILLIN [Concomitant]
     Active Substance: AMOXICILLIN
  7. BISOPROLOL FUMARATE [Concomitant]
     Active Substance: BISOPROLOL FUMARATE
  8. ALEVE [Concomitant]
     Active Substance: NAPROXEN SODIUM

REACTIONS (1)
  - Product storage error [Unknown]

NARRATIVE: CASE EVENT DATE: 20220622
